FAERS Safety Report 15789970 (Version 2)
Quarter: 2019Q3

REPORT INFORMATION
  Report Type: Spontaneous
  Country: US (occurrence: US)
  Receive Date: 20190104
  Receipt Date: 20190705
  Transmission Date: 20191004
  Serious: No
  Sender: FDA-Public Use
  Company Number: US-PFIZER INC-2017019932

PATIENT
  Age: 61 Year
  Sex: Female

DRUGS (28)
  1. LYRICA [Suspect]
     Active Substance: PREGABALIN
     Indication: PAIN IN EXTREMITY
     Dosage: 100 MG, 1X/DAY
     Route: 048
  2. ATORVASTATIN CALCIUM. [Concomitant]
     Active Substance: ATORVASTATIN CALCIUM
     Dosage: 40 MG, 1X/DAY (AT BED TIME)
     Route: 048
  3. MELATONIN [Concomitant]
     Active Substance: MELATONIN
     Dosage: 1 MG, UNK (AT TIMES)
  4. NORCO [Concomitant]
     Active Substance: ACETAMINOPHEN\HYDROCODONE BITARTRATE
     Dosage: 2 DF, 4X/DAY  [HYDROCODONE BITARTRATE 7.25MG]/[PARACETAMOL 325MG] (2 TABLETS EVERY 6 HOURS)
     Route: 048
  5. SPIRIVA [Concomitant]
     Active Substance: TIOTROPIUM BROMIDE MONOHYDRATE
     Dosage: 18 UG, DAILY (IN AM)
     Route: 055
  6. FOLIC ACID. [Concomitant]
     Active Substance: FOLIC ACID
     Dosage: 1 MG, 1X/DAY (AM)
  7. MIDODRINE HYDROCHLORIDE. [Concomitant]
     Active Substance: MIDODRINE HYDROCHLORIDE
     Dosage: 2.5 MG, AS NEEDED
     Route: 048
  8. NORCO [Concomitant]
     Active Substance: ACETAMINOPHEN\HYDROCODONE BITARTRATE
     Indication: PAIN
     Dosage: 1 DF, AS NEEDED [HYDROCODONE BITARTRATE 7.25MG]/[PARACETAMOL 325MG] (1 TABLET ORAL EVERY 4 HOURS)
     Route: 048
  9. METHOTREXATE. [Concomitant]
     Active Substance: METHOTREXATE
     Dosage: 10 MG, WEEKLY (4 TABLETS ON SAT AM)
  10. CALCIMIN [Concomitant]
     Dosage: 300 MG, DAILY
     Route: 048
  11. ZANTAC [Concomitant]
     Active Substance: RANITIDINE HYDROCHLORIDE
     Dosage: 150 MG, DAILY (AM/PM)
     Route: 048
  12. CYCLOBENZAPRINE. [Concomitant]
     Active Substance: CYCLOBENZAPRINE
     Dosage: 10 MG, AS NEEDED (3X A DAY)
  13. MECLIZINE [Concomitant]
     Active Substance: MECLIZINE HYDROCHLORIDE
     Indication: VERTIGO POSITIONAL
     Dosage: 25 MG, 3X/DAY
  14. ACETAMINOPHEN. [Concomitant]
     Active Substance: ACETAMINOPHEN
     Dosage: 500 MG, 4X/DAY (1 TABLET EVERY 6 HOURS)
     Route: 048
  15. PRIMIDONE. [Concomitant]
     Active Substance: PRIMIDONE
     Dosage: 125 MG, 1X/DAY (250MG 1/2 PILL AT NIGHT TIME)
  16. VITAMIN B12 [Concomitant]
     Active Substance: CYANOCOBALAMIN
     Dosage: 50 UG, DAILY
     Route: 048
  17. ASPIRIN. [Concomitant]
     Active Substance: ASPIRIN
     Dosage: 81 MG, DAILY
     Route: 048
  18. VOLTAREN [Concomitant]
     Active Substance: DICLOFENAC SODIUM
     Dosage: 1 %, UNK
  19. HUMIRA [Concomitant]
     Active Substance: ADALIMUMAB
     Dosage: UNK (40MG 0.8ML )
     Route: 058
  20. ONDASETRON [Concomitant]
     Active Substance: ONDANSETRON
     Dosage: 8 MG, 2X/DAY (4 MG 2 TABLETS TWICE A DAY)
  21. LYRICA [Suspect]
     Active Substance: PREGABALIN
     Indication: FIBROMYALGIA
     Dosage: 150 MG, DAILY(100 MG AM 50 MG PM )
  22. ALENDRONATE SODIUM. [Concomitant]
     Active Substance: ALENDRONATE SODIUM
     Dosage: 70 MG, WEEKLY (ON SATURDAYS)
     Route: 048
  23. VITAMIN D [Concomitant]
     Active Substance: VITAMIN D NOS
     Dosage: 400 IU, DAILY
     Route: 048
  24. HYDROXYZINE PAM [Concomitant]
     Active Substance: HYDROXYZINE PAMOATE
     Dosage: 50 MG, DAILY (AT BED TIME)
  25. NORCO [Concomitant]
     Active Substance: ACETAMINOPHEN\HYDROCODONE BITARTRATE
     Dosage: UNK
  26. DILTIAZEM. [Concomitant]
     Active Substance: DILTIAZEM
     Dosage: 30 MG, AS NEEDED (IN AM/ OR NIGHT IF NEEDED)
     Route: 048
  27. PLAVIX [Concomitant]
     Active Substance: CLOPIDOGREL BISULFATE
     Dosage: 75 MG, DAILY
     Route: 048
  28. ALPRAZOLAM. [Concomitant]
     Active Substance: ALPRAZOLAM
     Dosage: 0.5 MG, 3X/DAY (1 TABLET BY MOUTH 3 TIMES A DAY)
     Route: 048

REACTIONS (4)
  - Off label use [Unknown]
  - Product use issue [Unknown]
  - Blood pressure abnormal [Unknown]
  - Pain in extremity [Unknown]
